FAERS Safety Report 24659258 (Version 2)
Quarter: 2024Q4

REPORT INFORMATION
  Report Type: Spontaneous
  Country: CN (occurrence: CN)
  Receive Date: 20241125
  Receipt Date: 20241129
  Transmission Date: 20250114
  Serious: Yes (Other)
  Sender: NOVARTIS
  Company Number: CN-002147023-NVSC2024CN224442

PATIENT
  Age: 76 Year
  Sex: Male
  Weight: 61 kg

DRUGS (13)
  1. SACUBITRIL\VALSARTAN [Suspect]
     Active Substance: SACUBITRIL\VALSARTAN
     Indication: Hypertension
     Dosage: 50 MG, QD
     Route: 048
     Dates: start: 20241031, end: 20241117
  2. EZETIMIBE [Suspect]
     Active Substance: EZETIMIBE
     Indication: Lipids
     Dosage: 10 MG, QD
     Route: 048
     Dates: start: 20241031, end: 20241117
  3. EZETIMIBE [Suspect]
     Active Substance: EZETIMIBE
     Indication: Skin plaque
  4. OMEPRAZOLE SODIUM [Suspect]
     Active Substance: OMEPRAZOLE SODIUM
     Indication: Gastrointestinal mucosal disorder
     Dosage: 60 MG, QD (IVGTT)
     Route: 041
     Dates: start: 20241101, end: 20241117
  5. OMEPRAZOLE SODIUM [Suspect]
     Active Substance: OMEPRAZOLE SODIUM
     Indication: Symptomatic treatment
  6. METOPROLOL SUCCINATE [Suspect]
     Active Substance: METOPROLOL SUCCINATE
     Indication: Arteriosclerosis coronary artery
     Dosage: 47.5 MG, QD (SUSTAINED-RELEASE TABLETS  )
     Route: 048
     Dates: start: 20241031, end: 20241117
  7. ROSUVASTATIN CALCIUM [Suspect]
     Active Substance: ROSUVASTATIN CALCIUM
     Indication: Lipids
     Dosage: 10 MG, QD
     Route: 048
     Dates: start: 20241031, end: 20241110
  8. ROSUVASTATIN CALCIUM [Suspect]
     Active Substance: ROSUVASTATIN CALCIUM
     Indication: Skin plaque
  9. HEPARIN SODIUM [Concomitant]
     Active Substance: HEPARIN SODIUM
     Indication: Thrombosis
     Dosage: 0.4 ML, QD (IH)
     Route: 058
     Dates: start: 20241031, end: 20241105
  10. SODIUM CHLORIDE [Concomitant]
     Active Substance: SODIUM CHLORIDE
     Indication: Solvent sensitivity
     Dosage: 100 ML, QD
     Route: 041
     Dates: start: 20241101, end: 20241117
  11. SODIUM CHLORIDE [Concomitant]
     Active Substance: SODIUM CHLORIDE
     Indication: Gastrointestinal mucosal disorder
  12. SODIUM CHLORIDE [Concomitant]
     Active Substance: SODIUM CHLORIDE
     Indication: Symptomatic treatment
  13. CLOPIDOGREL BISULFATE [Concomitant]
     Active Substance: CLOPIDOGREL BISULFATE
     Indication: Antiplatelet therapy
     Dosage: 75 MG, QD
     Route: 048
     Dates: start: 20241031, end: 20241104

REACTIONS (1)
  - Transaminases increased [Recovered/Resolved]

NARRATIVE: CASE EVENT DATE: 20241110
